FAERS Safety Report 4751601-2 (Version None)
Quarter: 2005Q3

REPORT INFORMATION
  Report Type: 
  Country: None (occurrence: None)
  Receive Date: 20050822
  Receipt Date: 20050814
  Transmission Date: 20060218
  Serious: Yes (Other)
  Sender: FDA-Public Use
  Company Number: THQ2005A00510

PATIENT
  Age: 81 Year
  Sex: Female

DRUGS (6)
  1. LANSOPRAZOLE [Suspect]
     Indication: OESOPHAGITIS
     Dosage: 30 MG (30 MG, 1 IN 1 D) PER ORAL
     Route: 048
     Dates: start: 20050608, end: 20050608
  2. PARACETAMOL [Concomitant]
  3. LERCANIDIPINE [Concomitant]
  4. BENDROFLUAZIDE (BENDROFLUMETHIAZIDE) [Concomitant]
  5. SALBUTAMOL (INHALANT) [Concomitant]
  6. SYMBICORT (SYMBICORT TURBUHALER ^DRACO^) (INHALANT) [Concomitant]

REACTIONS (6)
  - AKATHISIA [None]
  - BLOOD PRESSURE INCREASED [None]
  - HEART RATE INCREASED [None]
  - MALAISE [None]
  - PALPITATIONS [None]
  - TREMOR [None]
